FAERS Safety Report 25134438 (Version 1)
Quarter: 2025Q1

REPORT INFORMATION
  Report Type: Spontaneous
  Country: US (occurrence: None)
  Receive Date: 20250327
  Receipt Date: 20250327
  Transmission Date: 20250409
  Serious: Yes (Hospitalization)
  Sender: FDA-CTU
  Company Number: None

PATIENT
  Sex: Female

DRUGS (11)
  1. LENALIDOMIDE [Suspect]
     Active Substance: LENALIDOMIDE
     Indication: Plasma cell myeloma
     Route: 048
     Dates: start: 20240410
  2. BENZONATATE CAP 200MG [Concomitant]
  3. CEFUROXIME [Concomitant]
     Active Substance: CEFUROXIME
  4. CYCLOBENZAPRINE [Concomitant]
     Active Substance: CYCLOBENZAPRINE
  5. DARZALEX [Concomitant]
     Active Substance: DARATUMUMAB
  6. DEXAMETHASONE [Concomitant]
     Active Substance: DEXAMETHASONE
  7. FOSFOMYCIN [Concomitant]
     Active Substance: FOSFOMYCIN
  8. ONDANSETRON [Concomitant]
     Active Substance: ONDANSETRON
  9. PEPCID [Concomitant]
     Active Substance: FAMOTIDINE
  10. PRAMIPEXOLE [Concomitant]
     Active Substance: PRAMIPEXOLE
  11. PROCHLORPER [Concomitant]

REACTIONS (1)
  - Therapy interrupted [None]
